FAERS Safety Report 5897863-X (Version None)
Quarter: 2008Q3

REPORT INFORMATION
  Report Type: 
  Country: None (occurrence: None)
  Receive Date: 20080924
  Receipt Date: 20080924
  Transmission Date: 20090109
  Serious: Yes (Other)
  Sender: FDA-Public Use
  Company Number: None

PATIENT
  Age: 67 Year
  Sex: Male
  Weight: 73.4827 kg

DRUGS (1)
  1. PURALUBE [Suspect]
     Indication: DRY EYE
     Dosage: 1 DR. EACH EYE

REACTIONS (2)
  - BURNING SENSATION [None]
  - VISION BLURRED [None]
